FAERS Safety Report 6681782-5 (Version None)
Quarter: 2010Q2

REPORT INFORMATION
  Report Type: 
  Country: None (occurrence: None)
  Receive Date: 20100414
  Receipt Date: 20100414
  Transmission Date: 20101027
  Serious: Yes (Death)
  Sender: FDA-Public Use
  Company Number: JP-B.I. PHARMACEUTICALS,INC./RIDGEFIELD-2009-BP-03992NB

PATIENT
  Sex: Male
  Weight: 64.2 kg

DRUGS (4)
  1. MICARDIS [Suspect]
     Indication: HYPERTENSION
     Dosage: 40 MG
     Route: 048
     Dates: start: 20060927
  2. ARTIST [Concomitant]
     Indication: HYPERTENSION
     Dosage: 10 MG
     Route: 048
     Dates: start: 20000901, end: 20080916
  3. FLUITRAN [Concomitant]
     Indication: HYPERTENSION
     Dosage: 1 MG
     Route: 048
     Dates: start: 20040427, end: 20080916
  4. WARFARIN SODIUM [Concomitant]
     Indication: PROPHYLAXIS
     Dosage: 2 MG
     Route: 048
     Dates: start: 20070401, end: 20080916

REACTIONS (2)
  - ATRIAL FIBRILLATION [None]
  - DEATH [None]
